FAERS Safety Report 6148765-5 (Version None)
Quarter: 2009Q2

REPORT INFORMATION
  Report Type: 
  Country: None (occurrence: None)
  Receive Date: 20090406
  Receipt Date: 20090323
  Transmission Date: 20091009
  Serious: Yes (Death)
  Sender: FDA-Public Use
  Company Number: ADE2009-0517

PATIENT
  Age: 32 Year
  Sex: Male

DRUGS (7)
  1. CITALOPRAM HYDROBROMIDE [Suspect]
  2. OLANZAPINE [Suspect]
  3. OLANZAPINE [Suspect]
  4. QUETIAPINE FUMARATE [Suspect]
  5. DIPHENHYDRAMINE HCL [Suspect]
  6. PHENYTOIN [Suspect]
  7. TRAZODONE HCL [Suspect]

REACTIONS (2)
  - COMPLETED SUICIDE [None]
  - DRUG TOXICITY [None]
